FAERS Safety Report 7917619-3 (Version None)
Quarter: 2011Q4

REPORT INFORMATION
  Report Type: 
  Country: None (occurrence: None)
  Receive Date: 20111116
  Receipt Date: 20111104
  Transmission Date: 20120403
  Serious: Yes (Other)
  Sender: FDA-Public Use
  Company Number: CA-ELI_LILLY_AND_COMPANY-CA201108007643

PATIENT
  Sex: Female

DRUGS (9)
  1. LOSEC                                   /CAN/ [Concomitant]
     Dosage: 20 MG, UNK
  2. HTZ [Concomitant]
  3. EZETIMIBE [Concomitant]
     Dosage: 10 DF, UNKNOWN
  4. TRAMADOL HYDROCHLORIDE/ACETAMINOPHEN [Concomitant]
  5. ASPIRIN [Concomitant]
     Dosage: 81 DF, UNKNOWN
  6. HYZAAR [Concomitant]
  7. AMLODIPINE [Concomitant]
     Dosage: 10 DF, UNKNOWN
  8. CYMBALTA [Suspect]
     Indication: PAIN
     Dosage: 30 MG, QD
     Route: 048
     Dates: start: 20110818, end: 20110820
  9. SOTALOL HCL [Concomitant]
     Dosage: 40 DF, BID

REACTIONS (1)
  - HYPONATRAEMIA [None]
